FAERS Safety Report 15042326 (Version 1)
Quarter: 2018Q2

REPORT INFORMATION
  Report Type: Spontaneous
  Country: FR (occurrence: FR)
  Receive Date: 20180621
  Receipt Date: 20180621
  Transmission Date: 20180711
  Serious: Yes (Hospitalization)
  Sender: FDA-Public Use
  Company Number: FR-AUROBINDO-AUR-APL-2018-031712

PATIENT
  Age: 62 Year
  Sex: Female
  Weight: 78 kg

DRUGS (5)
  1. IBUPROFEN. [Suspect]
     Active Substance: IBUPROFEN
     Indication: VIRAL PHARYNGITIS
     Dosage: UNK
     Route: 048
     Dates: start: 20180228
  2. AMOXICILLIN SODIUM [Concomitant]
     Active Substance: AMOXICILLIN SODIUM
     Indication: PRODUCT USED FOR UNKNOWN INDICATION
     Dosage: UNK
     Route: 065
  3. PARACETAMOL [Concomitant]
     Active Substance: ACETAMINOPHEN
     Indication: PRODUCT USED FOR UNKNOWN INDICATION
     Dosage: UNK
     Route: 065
  4. ASPIRINE [Suspect]
     Active Substance: ASPIRIN
     Indication: VIRAL PHARYNGITIS
     Dosage: 2 GRAM, DAILY
     Route: 048
     Dates: start: 20180312
  5. CODEINE [Concomitant]
     Active Substance: CODEINE
     Indication: PRODUCT USED FOR UNKNOWN INDICATION
     Dosage: UNK
     Route: 065

REACTIONS (1)
  - Vascular purpura [Recovering/Resolving]

NARRATIVE: CASE EVENT DATE: 20180312
